FAERS Safety Report 20842147 (Version 2)
Quarter: 2022Q3

REPORT INFORMATION
  Report Type: Spontaneous
  Country: US (occurrence: US)
  Receive Date: 20220518
  Receipt Date: 20220808
  Transmission Date: 20221026
  Serious: No
  Sender: FDA-Public Use
  Company Number: US-BRISTOL-MYERS SQUIBB COMPANY-2022-040938

PATIENT
  Age: 65 Year
  Sex: Female
  Weight: 88.0 kg

DRUGS (2)
  1. REVLIMID [Suspect]
     Active Substance: LENALIDOMIDE
     Indication: Plasma cell myeloma
     Dosage: 21DAYS ON , 7 DAYS OFF.
     Route: 048
     Dates: start: 2017
  2. REVLIMID [Suspect]
     Active Substance: LENALIDOMIDE
     Dosage: FREQ: 1 CAPSULE DAY 1-21, THEN 7 DAYS OFF. REPEAT
     Route: 048
     Dates: start: 20170301

REACTIONS (2)
  - Product dose omission issue [Unknown]
  - Oral herpes [Not Recovered/Not Resolved]
